FAERS Safety Report 7374741-0 (Version None)
Quarter: 2011Q1

REPORT INFORMATION
  Report Type: 
  Country: None (occurrence: None)
  Receive Date: 20110325
  Receipt Date: 20100923
  Transmission Date: 20110831
  Serious: No
  Sender: FDA-Public Use
  Company Number: US-MYLANLABS-2010S1017695

PATIENT
  Sex: Female

DRUGS (2)
  1. FENTANYL-100 [Suspect]
     Dates: start: 20090101
  2. OXYGEN [Concomitant]
     Route: 045

REACTIONS (6)
  - PARAESTHESIA [None]
  - OEDEMA PERIPHERAL [None]
  - DYSPNOEA [None]
  - HYPOAESTHESIA [None]
  - CHEST PAIN [None]
  - MUSCULOSKELETAL CHEST PAIN [None]
